FAERS Safety Report 9588399 (Version 1)
Quarter: 2013Q4

REPORT INFORMATION
  Report Type: Spontaneous
  Country: US (occurrence: US)
  Receive Date: 20131003
  Receipt Date: 20131003
  Transmission Date: 20140711
  Serious: No
  Sender: FDA-Public Use
  Company Number: US-AMGEN-USASP2012063816

PATIENT
  Age: 75 Year
  Sex: Female

DRUGS (2)
  1. ENBREL [Suspect]
     Indication: RHEUMATOID ARTHRITIS
     Dosage: UNK
     Dates: start: 20120525, end: 2012
  2. METHOTREXATE [Concomitant]
     Dosage: 2.5 MG PER PILL, 10 PILLS ONCE WEEKLY

REACTIONS (3)
  - Malaise [Recovered/Resolved]
  - Poor quality sleep [Recovered/Resolved]
  - Nausea [Recovered/Resolved]
